FAERS Safety Report 12380515 (Version 2)
Quarter: 2016Q3

REPORT INFORMATION
  Report Type: Report from Study
  Country: CA (occurrence: CA)
  Receive Date: 20160518
  Receipt Date: 20160708
  Transmission Date: 20161109
  Serious: Yes (Life-Threatening)
  Sender: FDA-Public Use
  Company Number: PHHO2016CA007194

PATIENT
  Age: 84 Year
  Sex: Female
  Weight: 54.8 kg

DRUGS (2)
  1. BENDAMUSTINE [Suspect]
     Active Substance: BENDAMUSTINE
     Indication: B-CELL LYMPHOMA
     Dosage: 90 MG/M2, UNK
     Route: 065
     Dates: start: 20141016, end: 20150313
  2. OFATUMUMAB [Suspect]
     Active Substance: OFATUMUMAB
     Indication: B-CELL LYMPHOMA
     Dosage: 1000 MG, UNK
     Route: 065
     Dates: start: 20141016, end: 20150630

REACTIONS (1)
  - Progressive multifocal leukoencephalopathy [Not Recovered/Not Resolved]

NARRATIVE: CASE EVENT DATE: 20160302
